FAERS Safety Report 5069865-7 (Version None)
Quarter: 2006Q3

REPORT INFORMATION
  Report Type: 
  Country: None (occurrence: None)
  Receive Date: 20060720
  Receipt Date: 20060710
  Transmission Date: 20061208
  Serious: Yes (Hospitalization, Other)
  Sender: FDA-Public Use
  Company Number: 2006BH011709

PATIENT
  Age: 13 Year
  Sex: Male

DRUGS (2)
  1. RECOMBINANT (FACTOR VIII, RECOMBINANT) [Suspect]
     Indication: FACTOR VIII DEFICIENCY
     Dosage: AS NEEDED; IV
     Route: 042
     Dates: start: 20041212, end: 20050101
  2. HEXATRIONE [Concomitant]

REACTIONS (3)
  - ACTIVATED PARTIAL THROMBOPLASTIN TIME PROLONGED [None]
  - DRUG EFFECT DECREASED [None]
  - HAEMARTHROSIS [None]
